FAERS Safety Report 4993561-5 (Version None)
Quarter: 2006Q2

REPORT INFORMATION
  Report Type: 
  Country: None (occurrence: None)
  Receive Date: 20060504
  Receipt Date: 20060504
  Transmission Date: 20061013
  Serious: Yes (Hospitalization)
  Sender: FDA-Public Use
  Company Number: None

PATIENT
  Age: 57 Year
  Sex: Male
  Weight: 121.564 kg

DRUGS (5)
  1. MIDAZOLAM HCL [Suspect]
     Indication: ANAESTHESIA
     Dosage: 2 MG  IV
     Route: 042
     Dates: start: 20060104
  2. FENTANYL [Suspect]
     Indication: ANAESTHESIA
     Dosage: 200 MCG  IV
     Route: 042
     Dates: start: 20060104
  3. DRIXORAL [Concomitant]
  4. ADVAIR DISKUS 100/50 [Concomitant]
  5. ALBUTEROL SULFATE AUTOHALER [Concomitant]

REACTIONS (4)
  - DELAYED RECOVERY FROM ANAESTHESIA [None]
  - DRUG EFFECT DECREASED [None]
  - HYPERCAPNIA [None]
  - SOMNOLENCE [None]
